FAERS Safety Report 9964156 (Version 2)
Quarter: 2014Q1

REPORT INFORMATION
  Report Type: Spontaneous
  Country: IN (occurrence: IN)
  Receive Date: 20140305
  Receipt Date: 20140305
  Transmission Date: 20141002
  Serious: Yes (Death, Hospitalization)
  Sender: FDA-Public Use
  Company Number: IN-BAXTER-2014BAX008324

PATIENT
  Age: 61 Year
  Sex: Male

DRUGS (1)
  1. DIANEAL PD-2 PERITONEAL DIALISIS SOLUTION ULTRABAG WITH 2.5% DEXTROSE [Suspect]
     Indication: PERITONEAL DIALYSIS
     Route: 033
     Dates: start: 20140131

REACTIONS (5)
  - Cardiac arrest [Fatal]
  - Peritonitis [Unknown]
  - Peritoneal dialysis complication [Unknown]
  - Blood bilirubin abnormal [Unknown]
  - Hypotension [Unknown]
